FAERS Safety Report 24953949 (Version 1)
Quarter: 2025Q1

REPORT INFORMATION
  Report Type: Spontaneous
  Country: IT (occurrence: IT)
  Receive Date: 20250211
  Receipt Date: 20250211
  Transmission Date: 20250409
  Serious: No
  Sender: ALKEM
  Company Number: IT-ALKEM LABORATORIES LIMITED-IT-ALKEM-2024-07831

PATIENT
  Age: 37 Year
  Sex: Male

DRUGS (2)
  1. TRIAMCINOLONE ACETONIDE [Suspect]
     Active Substance: TRIAMCINOLONE ACETONIDE
     Indication: Hidradenitis
     Route: 026
  2. LINCOMYCIN [Suspect]
     Active Substance: LINCOMYCIN
     Indication: Hidradenitis
     Route: 026

REACTIONS (1)
  - Acanthosis nigricans [Unknown]
